FAERS Safety Report 21650489 (Version 3)
Quarter: 2023Q1

REPORT INFORMATION
  Report Type: Spontaneous
  Country: US (occurrence: US)
  Receive Date: 20221128
  Receipt Date: 20230320
  Transmission Date: 20230418
  Serious: Yes (Other)
  Sender: FDA-Public Use
  Company Number: US-PFIZER INC-PV202200109661

PATIENT
  Age: 60 Year
  Sex: Male

DRUGS (1)
  1. XELJANZ XR [Suspect]
     Active Substance: TOFACITINIB CITRATE
     Dosage: 22 MG

REACTIONS (8)
  - Rectal haemorrhage [Recovering/Resolving]
  - Haematochezia [Unknown]
  - Proctalgia [Recovered/Resolved]
  - Intestinal mass [Recovered/Resolved]
  - Constipation [Recovered/Resolved]
  - Diarrhoea [Unknown]
  - Memory impairment [Unknown]
  - Product dose omission in error [Unknown]

NARRATIVE: CASE EVENT DATE: 20221201
